FAERS Safety Report 23725907 (Version 1)
Quarter: 2024Q2

REPORT INFORMATION
  Report Type: Report from Study
  Country: CA (occurrence: CA)
  Receive Date: 20240410
  Receipt Date: 20240410
  Transmission Date: 20240715
  Serious: Yes (Hospitalization)
  Sender: FDA-Public Use
  Company Number: CA-ABBVIE-5712130

PATIENT
  Age: 74 Year
  Sex: Male

DRUGS (2)
  1. VENCLEXTA [Suspect]
     Active Substance: VENETOCLAX
     Indication: T-cell type acute leukaemia
     Dosage: DAILY X 7 DAYS
     Route: 048
  2. VENCLEXTA [Suspect]
     Active Substance: VENETOCLAX
     Indication: T-cell type acute leukaemia
     Dosage: DAILY X 7 DAYS
     Route: 048

REACTIONS (4)
  - Pyrexia [Unknown]
  - Off label use [Unknown]
  - Hospitalisation [Unknown]
  - Catheter site infection [Unknown]

NARRATIVE: CASE EVENT DATE: 20240209
